FAERS Safety Report 7092499-X (Version None)
Quarter: 2010Q4

REPORT INFORMATION
  Report Type: 
  Country: None (occurrence: None)
  Receive Date: 20101108
  Receipt Date: 20101108
  Transmission Date: 20110411
  Serious: No
  Sender: FDA-Public Use
  Company Number: None

PATIENT
  Age: 59 Year
  Sex: Female
  Weight: 66.6788 kg

DRUGS (1)
  1. RECLAST [Suspect]
     Indication: OSTEOPOROSIS PROPHYLAXIS
     Dosage: ONCE A YEAR
     Dates: start: 20101021, end: 20101021

REACTIONS (2)
  - CHEST DISCOMFORT [None]
  - PAIN [None]
